FAERS Safety Report 16463094 (Version 1)
Quarter: 2019Q2

REPORT INFORMATION
  Report Type: Report from Study
  Country: IT (occurrence: IT)
  Receive Date: 20190621
  Receipt Date: 20190621
  Transmission Date: 20190711
  Serious: No
  Sender: FDA-Public Use
  Company Number: US-CELGENEUS-ITA-20190607142

PATIENT
  Age: 81 Year
  Sex: Male

DRUGS (2)
  1. DESAMETASONE [Concomitant]
     Active Substance: DEXAMETHASONE
     Indication: PLASMA CELL MYELOMA
     Route: 065
     Dates: start: 20181120, end: 20190527
  2. REVLIMID [Suspect]
     Active Substance: LENALIDOMIDE
     Indication: PLASMA CELL MYELOMA
     Route: 048
     Dates: start: 20181120, end: 20190527

REACTIONS (3)
  - Infection [Unknown]
  - Haematotoxicity [Unknown]
  - Pancytopenia [Unknown]
